FAERS Safety Report 5660698-7 (Version None)
Quarter: 2008Q1

REPORT INFORMATION
  Report Type: 
  Country: None (occurrence: None)
  Receive Date: 20080311
  Receipt Date: 20080304
  Transmission Date: 20080703
  Serious: Yes (Other)
  Sender: FDA-Public Use
  Company Number: JP-AVENTIS-200810739JP

PATIENT

DRUGS (7)
  1. ALLEGRA [Suspect]
     Dosage: DOSE: 2 TBLS/DAY
     Route: 048
     Dates: start: 20071201
  2. TALION                             /01587401/ [Concomitant]
  3. TALION                             /01587401/ [Concomitant]
  4. FLUITRAN [Concomitant]
  5. URSO                               /00465701/ [Concomitant]
  6. LIVACT [Concomitant]
  7. GLAKAY [Concomitant]

REACTIONS (1)
  - HYPERTENSION [None]
